FAERS Safety Report 15264697 (Version 1)
Quarter: 2018Q3

REPORT INFORMATION
  Report Type: Spontaneous
  Country: US (occurrence: US)
  Receive Date: 20180723
  Receipt Date: 20180723
  Transmission Date: 20181010
  Serious: No
  Sender: FDA-Public Use
  Company Number: None

PATIENT
  Age: 19 Year
  Sex: Female

DRUGS (3)
  1. IPRATROPIUM [Concomitant]
     Active Substance: IPRATROPIUM
  2. AFINITOR [Suspect]
     Active Substance: EVEROLIMUS
  3. BUPROPION. [Concomitant]
     Active Substance: BUPROPION

REACTIONS (2)
  - Acne [None]
  - Ovarian cyst [None]

NARRATIVE: CASE EVENT DATE: 20100801
